FAERS Safety Report 8226429-1 (Version None)
Quarter: 2012Q1

REPORT INFORMATION
  Report Type: 
  Country: None (occurrence: None)
  Receive Date: 20120321
  Receipt Date: 20120312
  Transmission Date: 20120608
  Serious: Yes (Other)
  Sender: FDA-Public Use
  Company Number: US-ASTRAZENECA-2012SE11794

PATIENT
  Age: 70 Year
  Sex: Female

DRUGS (4)
  1. SYNTHROID [Concomitant]
  2. NEXIUM [Suspect]
     Route: 048
  3. ATENOLOL [Suspect]
     Route: 065
  4. PRODAXRA [Concomitant]

REACTIONS (1)
  - CEREBROVASCULAR ACCIDENT [None]
